FAERS Safety Report 20109073 (Version 1)
Quarter: 2021Q4

REPORT INFORMATION
  Report Type: Spontaneous
  Country: CN (occurrence: CN)
  Receive Date: 20211124
  Receipt Date: 20211124
  Transmission Date: 20220304
  Serious: Yes (Other)
  Sender: FDA-Public Use
  Company Number: CN-PFIZER INC-202101566493

PATIENT
  Age: 29 Year
  Sex: Female
  Weight: 65 kg

DRUGS (2)
  1. AZITHROMYCIN [Suspect]
     Active Substance: AZITHROMYCIN
     Indication: Cough
     Dosage: 0.5 G, ONCE A DAY (QD)
     Route: 041
     Dates: start: 20211101, end: 20211101
  2. AZITHROMYCIN [Suspect]
     Active Substance: AZITHROMYCIN
     Indication: Mycoplasma infection

REACTIONS (4)
  - Chest discomfort [Recovering/Resolving]
  - Epigastric discomfort [Recovering/Resolving]
  - Chest discomfort [Recovering/Resolving]
  - Tachypnoea [Recovering/Resolving]

NARRATIVE: CASE EVENT DATE: 20211101
